FAERS Safety Report 24434439 (Version 2)
Quarter: 2024Q4

REPORT INFORMATION
  Report Type: Spontaneous
  Country: US (occurrence: US)
  Receive Date: 20241014
  Receipt Date: 20241020
  Transmission Date: 20250114
  Serious: No
  Sender: BAYER HEALTHCARE PHARMACEUTICALS INC.
  Company Number: US-BAYER-2024A144393

PATIENT
  Age: 45 Year
  Sex: Female

DRUGS (1)
  1. CLIMARA PRO [Suspect]
     Active Substance: ESTRADIOL\LEVONORGESTREL
     Indication: Menopausal symptoms
     Dosage: UNK
     Route: 062

REACTIONS (4)
  - Menopausal symptoms [None]
  - Product physical issue [None]
  - Off label use [None]
  - Device use issue [None]

NARRATIVE: CASE EVENT DATE: 20241009
